FAERS Safety Report 5874506-2 (Version None)
Quarter: 2008Q3

REPORT INFORMATION
  Report Type: 
  Country: None (occurrence: None)
  Receive Date: 20080909
  Receipt Date: 20080828
  Transmission Date: 20090109
  Serious: Yes (Hospitalization)
  Sender: FDA-Public Use
  Company Number: PHHY2008JP18733

PATIENT
  Age: 53 Year
  Sex: Male
  Weight: 80 kg

DRUGS (9)
  1. VOLTAREN [Suspect]
     Indication: POSTOPERATIVE CARE
     Route: 054
  2. ETODOLAC [Suspect]
     Indication: POSTOPERATIVE CARE
     Route: 048
  3. BUPRENORPHINE HYDROCHLORIDE [Concomitant]
     Indication: POSTOPERATIVE CARE
     Route: 054
  4. PENTAZOCINE LACTATE [Concomitant]
     Indication: POSTOPERATIVE CARE
     Route: 030
  5. FLUVOXAMINE MALEATE [Concomitant]
     Indication: POSTOPERATIVE CARE
     Route: 048
  6. INDOMETHACIN [Concomitant]
     Route: 054
  7. ROPIVACAINE [Concomitant]
     Route: 008
  8. CODEINE PHOSPHATE [Concomitant]
     Dosage: UNK
  9. FLURBIPROFEN AXETIL [Concomitant]

REACTIONS (8)
  - ABDOMINAL CAVITY DRAINAGE [None]
  - ABDOMINAL DISTENSION [None]
  - ASCITES [None]
  - DUODENAL PERFORATION [None]
  - DUODENAL ULCER [None]
  - ENDOSCOPY [None]
  - GASTROINTESTINAL TUBE INSERTION [None]
  - POST PROCEDURAL BILE LEAK [None]
